FAERS Safety Report 25778569 (Version 1)
Quarter: 2025Q3

REPORT INFORMATION
  Report Type: Spontaneous
  Country: JP (occurrence: JP)
  Receive Date: 20250909
  Receipt Date: 20250909
  Transmission Date: 20251021
  Serious: Yes (Hospitalization, Other)
  Sender: MERCK SHARP & DOHME LLC
  Company Number: JP-MSD-M2024-34766

PATIENT
  Age: 71 Year
  Sex: Female

DRUGS (9)
  1. KEYTRUDA [Suspect]
     Active Substance: PEMBROLIZUMAB
     Indication: Lung adenocarcinoma recurrent
     Route: 041
     Dates: start: 20240819, end: 20240819
  2. PEMETREXED DISODIUM [Suspect]
     Active Substance: PEMETREXED DISODIUM
     Indication: Lung adenocarcinoma recurrent
     Route: 041
     Dates: start: 20240819, end: 20240819
  3. CARBOPLATIN [Suspect]
     Active Substance: CARBOPLATIN
     Indication: Lung adenocarcinoma recurrent
     Route: 041
     Dates: start: 20240819, end: 20240819
  4. PANVITAN [ASCORBIC ACID;CALCIUM PANTOTHENATE;CYANOCOBALAMIN;ERGOCAL... [Concomitant]
     Indication: Prophylaxis
     Dosage: DOSE DESCRIPTION : 1 GRAM, QD?DAILY DOSE : 1 GRAM
     Route: 048
     Dates: start: 20240809
  5. FEMARA [Concomitant]
     Active Substance: LETROZOLE
     Route: 048
  6. METHYLCOBALAMIN [Concomitant]
     Active Substance: METHYLCOBALAMIN
     Indication: Prophylaxis
     Route: 030
     Dates: start: 20240819
  7. PEGFILGRASTIM [Concomitant]
     Active Substance: PEGFILGRASTIM
     Route: 065
     Dates: start: 20240820
  8. AMLODIPINE [Concomitant]
     Active Substance: AMLODIPINE BESYLATE
     Route: 065
  9. FENOFIBRATE [Concomitant]
     Active Substance: FENOFIBRATE
     Route: 065

REACTIONS (5)
  - Aplastic anaemia [Recovering/Resolving]
  - Inflammation [Unknown]
  - Renal disorder [Unknown]
  - Liver disorder [Unknown]
  - Myelosuppression [Unknown]

NARRATIVE: CASE EVENT DATE: 20240826
